FAERS Safety Report 4460516-9 (Version None)
Quarter: 2004Q3

REPORT INFORMATION
  Report Type: 
  Country: None (occurrence: None)
  Receive Date: 20040923
  Receipt Date: 20040913
  Transmission Date: 20050211
  Serious: Yes (Disabling)
  Sender: FDA-Public Use
  Company Number: HQWYE686103NOV03

PATIENT
  Age: 75 Year
  Sex: Male

DRUGS (7)
  1. DIMETAPP [Suspect]
     Indication: HYPERSENSITIVITY
     Dosage: ORAL
     Route: 048
  2. DIMETAPP [Suspect]
     Indication: NASOPHARYNGITIS
     Dosage: ORAL
     Route: 048
  3. DIMETAPP [Suspect]
     Indication: SINUS DISORDER
     Dosage: ORAL
     Route: 048
  4. ROBITUSSINC F [Suspect]
     Indication: HYPERSENSITIVITY
     Dosage: ORAL
     Route: 048
  5. ROBITUSSINC F [Suspect]
     Indication: INFLUENZA
     Dosage: ORAL
     Route: 048
  6. ROBITUSSINC F [Suspect]
     Indication: NASOPHARYNGITIS
     Dosage: ORAL
     Route: 048
  7. ROBITUSSINC F [Suspect]
     Indication: SINUS DISORDER
     Dosage: ORAL
     Route: 048

REACTIONS (1)
  - CEREBROVASCULAR ACCIDENT [None]
